FAERS Safety Report 7082196-9 (Version None)
Quarter: 2010Q4

REPORT INFORMATION
  Report Type: 
  Country: None (occurrence: None)
  Receive Date: 20101103
  Receipt Date: 20101025
  Transmission Date: 20110411
  Serious: Yes (Death)
  Sender: FDA-Public Use
  Company Number: JP-AMGEN-KDC430023

PATIENT
  Age: 44 Year
  Sex: Female
  Weight: 40 kg

DRUGS (15)
  1. PANITUMUMAB [Suspect]
     Indication: COLORECTAL CANCER
     Dosage: 6 MG/KG, Q2WK
     Route: 041
     Dates: start: 20100729, end: 20100729
  2. CORTICOSTEROID NOS [Concomitant]
     Indication: PROPHYLAXIS
     Dosage: UNK UNK, UNK
     Route: 065
  3. OXYCODONE HYDROCHLORIDE [Concomitant]
     Dosage: UNK UNK, UNK
     Route: 048
  4. JUZENTAIHOTO [Concomitant]
     Dosage: UNK UNK, UNK
     Route: 048
  5. JUZENTAIHOTO [Concomitant]
     Route: 048
  6. PREDNISOLONE [Concomitant]
     Dosage: UNK UNK, UNK
     Route: 048
  7. PREDNISOLONE [Concomitant]
     Route: 048
  8. PAROXETINE HYDROCHLORIDE [Concomitant]
     Dosage: UNK UNK, UNK
     Route: 048
  9. CODEINE PHOSPHATE [Concomitant]
     Dosage: UNK UNK, UNK
     Route: 048
  10. CODEINE PHOSPHATE [Concomitant]
     Route: 048
  11. HALOPERIDOL [Concomitant]
     Dosage: UNK UNK, UNK
     Route: 048
  12. CORTICOSTEROIDS [Concomitant]
     Indication: PROPHYLAXIS
     Route: 065
  13. OXYCONTIN [Concomitant]
     Route: 048
  14. PAXIL [Concomitant]
     Route: 048
  15. SERENACE [Concomitant]
     Route: 048

REACTIONS (3)
  - COLORECTAL CANCER [None]
  - HYPOPHAGIA [None]
  - MALAISE [None]
